FAERS Safety Report 26076436 (Version 1)
Quarter: 2025Q4

REPORT INFORMATION
  Report Type: Spontaneous
  Country: EU (occurrence: EU)
  Receive Date: 20251121
  Receipt Date: 20251121
  Transmission Date: 20260117
  Serious: Yes (Other)
  Sender: PFIZER
  Company Number: EU-PFM-2025-05556

PATIENT

DRUGS (4)
  1. ENCORAFENIB [Suspect]
     Active Substance: ENCORAFENIB
     Indication: BRAF gene mutation
     Dosage: UNK
  2. ENCORAFENIB [Suspect]
     Active Substance: ENCORAFENIB
     Indication: Malignant melanoma
  3. BINIMETINIB [Suspect]
     Active Substance: BINIMETINIB
     Indication: BRAF gene mutation
     Dosage: UNK
     Route: 065
  4. BINIMETINIB [Suspect]
     Active Substance: BINIMETINIB
     Indication: Malignant melanoma

REACTIONS (1)
  - Colitis ulcerative [Unknown]
